FAERS Safety Report 4693025-2 (Version None)
Quarter: 2005Q2

REPORT INFORMATION
  Report Type: 
  Country: None (occurrence: None)
  Receive Date: 20050615
  Receipt Date: 20050513
  Transmission Date: 20051028
  Serious: No
  Sender: FDA-Public Use
  Company Number: 200504579

PATIENT
  Age: 68 Year
  Sex: Male

DRUGS (9)
  1. ZYMAR [Suspect]
     Indication: POSTOPERATIVE CARE
     Dosage: 1 DROP QID EYE
     Dates: start: 20050307, end: 20050407
  2. ZYMAR [Suspect]
     Indication: PREOPERATIVE CARE
     Dosage: 1 DROP QID EYE
     Dates: start: 20050307, end: 20050407
  3. PRED FORTE [Concomitant]
  4. LOPRESSOR [Concomitant]
  5. TAGAMET [Concomitant]
  6. ZESTRIL [Concomitant]
  7. LASIX [Concomitant]
  8. PANTOPRAZOLE [Concomitant]
  9. PLETAL [Concomitant]

REACTIONS (4)
  - BLINDNESS TRANSIENT [None]
  - ENDOPHTHALMITIS [None]
  - POST PROCEDURAL COMPLICATION [None]
  - STAPHYLOCOCCAL INFECTION [None]
